FAERS Safety Report 11852167 (Version 1)
Quarter: 2015Q4

REPORT INFORMATION
  Report Type: Spontaneous
  Country: US (occurrence: US)
  Receive Date: 20151218
  Receipt Date: 20151218
  Transmission Date: 20160305
  Serious: Yes (Other)
  Sender: FDA-Public Use
  Company Number: US-AMGEN-USASP2015044313

PATIENT
  Age: 61 Year
  Sex: Female

DRUGS (6)
  1. PROLIA [Suspect]
     Active Substance: DENOSUMAB
     Indication: OSTEOPOROSIS
     Dosage: UNK
     Route: 065
  2. EFFEXOR [Concomitant]
     Active Substance: VENLAFAXINE HYDROCHLORIDE
     Dosage: UNK UNK, QD
  3. ADDERALL [Concomitant]
     Active Substance: AMPHETAMINE ASPARTATE\AMPHETAMINE SULFATE\DEXTROAMPHETAMINE SACCHARATE\DEXTROAMPHETAMINE SULFATE
     Dosage: UNK UNK, QD
  4. PROVIGIL [Concomitant]
     Active Substance: MODAFINIL
     Dosage: UNK
  5. LAMICTAL [Concomitant]
     Active Substance: LAMOTRIGINE
     Dosage: UNK UNK, QD
  6. XANAX [Concomitant]
     Active Substance: ALPRAZOLAM
     Dosage: UNK UNK, QD

REACTIONS (14)
  - Malaise [Unknown]
  - Fall [Unknown]
  - Arthralgia [Unknown]
  - Myalgia [Not Recovered/Not Resolved]
  - Visual impairment [Unknown]
  - Incorrect route of drug administration [Unknown]
  - Musculoskeletal discomfort [Unknown]
  - Fatigue [Not Recovered/Not Resolved]
  - Vomiting [Not Recovered/Not Resolved]
  - Dyspnoea [Not Recovered/Not Resolved]
  - Swelling face [Not Recovered/Not Resolved]
  - Tremor [Unknown]
  - Dysstasia [Not Recovered/Not Resolved]
  - Feeling abnormal [Not Recovered/Not Resolved]

NARRATIVE: CASE EVENT DATE: 201502
